FAERS Safety Report 5853434-2 (Version None)
Quarter: 2008Q3

REPORT INFORMATION
  Report Type: 
  Country: None (occurrence: None)
  Receive Date: 20080820
  Receipt Date: 20080814
  Transmission Date: 20090109
  Serious: Yes (Death, Other)
  Sender: FDA-Public Use
  Company Number: 2007JP000773

PATIENT
  Age: 32 Year
  Sex: Male
  Weight: 67 kg

DRUGS (21)
  1. PROGRAF [Suspect]
     Indication: LUNG TRANSPLANT
     Dosage: SEE IMAGE
     Route: 048
     Dates: start: 20050726, end: 20061028
  2. PROGRAF [Suspect]
     Indication: LUNG TRANSPLANT
     Dosage: SEE IMAGE
     Route: 048
     Dates: start: 20061104
  3. PROGRAF [Suspect]
     Indication: LUNG TRANSPLANT
     Dosage: SEE IMAGE
     Route: 048
     Dates: start: 20061127
  4. PROGRAF [Suspect]
     Indication: LUNG TRANSPLANT
     Dosage: SEE IMAGE
     Route: 048
     Dates: start: 20070104
  5. PROGRAF [Suspect]
     Indication: LUNG TRANSPLANT
     Dosage: SEE IMAGE
     Route: 048
     Dates: start: 20070409
  6. PROGRAF [Suspect]
     Indication: LUNG TRANSPLANT
     Dosage: 1.93 MG, IV NOS
     Route: 042
     Dates: start: 20061029
  7. MEPTIN(PROCATEROL HYDROCHLORIDE) FORMULATION UNKNOWN [Suspect]
  8. SEREVENT [Suspect]
  9. METHYLPREDNISOLONE [Concomitant]
  10. CELLCEPT [Concomitant]
  11. CICLOSPORIN FORMULATION UNKNOWN [Concomitant]
  12. METHOTREXATE FORMULATION UNKNOWN [Concomitant]
  13. PREDNISOLONE [Concomitant]
  14. OMEPRAL INJECTION [Concomitant]
  15. TAKEPRON (LANSOPRAZOLE) ORODISPERSIBLE CR TABLET [Concomitant]
  16. CEFTAZIDIME [Concomitant]
  17. DALACIN INJECTION [Concomitant]
  18. DENOSINE (GANCICLOVIR) INJECTION [Concomitant]
  19. ELASPOL (SIVELESTAT) INJECTION [Concomitant]
  20. DIFLUCAN [Concomitant]
  21. BAKTAR (SULFAMETHOXAZOLE, TRIMETHOPRIM) PER ORAL NOS [Concomitant]

REACTIONS (13)
  - ARRHYTHMIA [None]
  - CARDIAC DISORDER [None]
  - HEPATOSPLENIC T-CELL LYMPHOMA [None]
  - MENTAL DISORDER [None]
  - OESOPHAGEAL CANDIDIASIS [None]
  - PALPITATIONS [None]
  - PANCYTOPENIA [None]
  - PSEUDOMONAS INFECTION [None]
  - SPLENOMEGALY [None]
  - STAPHYLOCOCCAL INFECTION [None]
  - TACHYCARDIA [None]
  - TRANSPLANT REJECTION [None]
  - TREMOR [None]
